FAERS Safety Report 6993856-X (Version None)
Quarter: 2010Q3

REPORT INFORMATION
  Report Type: 
  Country: None (occurrence: None)
  Receive Date: 20100917
  Receipt Date: 20070510
  Transmission Date: 20110219
  Serious: Yes (Disabling)
  Sender: FDA-Public Use
  Company Number: US-ASTRAZENECA-2006UW26218

PATIENT
  Sex: Male
  Weight: 87.5 kg

DRUGS (25)
  1. SEROQUEL [Suspect]
     Indication: DEPRESSION
     Dosage: 150 MG - 300 MG
     Route: 048
     Dates: start: 20051030
  2. SEROQUEL [Suspect]
     Indication: SCHIZOPHRENIA
     Dosage: 150 MG - 300 MG
     Route: 048
     Dates: start: 20051030
  3. SEROQUEL [Suspect]
     Dosage: 300 - 400 MG
     Route: 048
     Dates: start: 20060218
  4. SEROQUEL [Suspect]
     Dosage: 300 - 400 MG
     Route: 048
     Dates: start: 20060218
  5. SEROQUEL [Suspect]
     Route: 048
     Dates: start: 20060409
  6. SEROQUEL [Suspect]
     Route: 048
     Dates: start: 20060409
  7. HALDOL [Concomitant]
     Dates: start: 19940101
  8. ZYPREXA [Concomitant]
     Dates: start: 19920101
  9. ZOLOFT [Concomitant]
     Route: 048
     Dates: start: 20051030
  10. ATENOLOL [Concomitant]
     Route: 048
     Dates: start: 20051117
  11. NORVASC [Concomitant]
     Route: 048
     Dates: start: 20051117
  12. LIPITOR [Concomitant]
     Route: 048
     Dates: start: 20051117
  13. DYAZIDE [Concomitant]
     Dosage: 37.5 / 25 MG EVERY DAY
     Route: 048
     Dates: start: 20051117
  14. ASPIRIN [Concomitant]
     Route: 048
     Dates: start: 20051117
  15. BUPROPION HCL [Concomitant]
     Route: 048
     Dates: start: 20060530
  16. SERTRALINE HYDROCHLORIDE [Concomitant]
     Dosage: 100 MG - 150 MG
     Route: 048
     Dates: start: 20060530
  17. REMERON [Concomitant]
     Route: 048
     Dates: start: 20070329
  18. HYTRIN [Concomitant]
     Route: 048
     Dates: start: 20060309
  19. IBUPROFEN [Concomitant]
     Route: 048
     Dates: start: 20040930
  20. LASIX [Concomitant]
     Route: 048
     Dates: start: 20070712
  21. VASOTEC [Concomitant]
     Route: 048
     Dates: start: 20060728
  22. ZOCOR [Concomitant]
     Route: 048
     Dates: start: 20060728
  23. OMEPRAZOLE [Concomitant]
     Route: 048
     Dates: start: 20060728
  24. PLAVIX [Concomitant]
     Route: 048
     Dates: start: 20060728
  25. DARVOCET [Concomitant]
     Indication: PAIN
     Route: 048
     Dates: start: 20060728

REACTIONS (1)
  - TYPE 2 DIABETES MELLITUS [None]
